FAERS Safety Report 21286042 (Version 1)
Quarter: 2022Q3

REPORT INFORMATION
  Report Type: Spontaneous
  Country: US (occurrence: None)
  Receive Date: 20220901
  Receipt Date: 20220901
  Transmission Date: 20221027
  Serious: Yes (Other)
  Sender: FDA-Public Use
  Company Number: None

PATIENT
  Age: 39 Year
  Sex: Male

DRUGS (1)
  1. DESCOVY [Suspect]
     Active Substance: EMTRICITABINE\TENOFOVIR ALAFENAMIDE FUMARATE
     Dosage: OTHER QUANTITY : 200/25;?FREQUENCY : DAILY;?
     Route: 048
     Dates: start: 20210610, end: 20220610

REACTIONS (2)
  - Product dose omission issue [None]
  - Insurance issue [None]

NARRATIVE: CASE EVENT DATE: 20220810
